FAERS Safety Report 4499846-3 (Version None)
Quarter: 2004Q4

REPORT INFORMATION
  Report Type: 
  Country: None (occurrence: None)
  Receive Date: 20041112
  Receipt Date: 20041028
  Transmission Date: 20050328
  Serious: Yes (Life-Threatening, Hospitalization)
  Sender: FDA-Public Use
  Company Number: US-AMGEN-US097741

PATIENT
  Sex: Female

DRUGS (4)
  1. ENBREL [Suspect]
     Indication: RHEUMATOID ARTHRITIS
     Route: 058
     Dates: start: 20021201
  2. PREDNISONE [Suspect]
     Route: 048
     Dates: start: 19980101
  3. METHOTREXATE [Suspect]
     Route: 058
     Dates: start: 20010901
  4. SYNTHROID [Concomitant]

REACTIONS (1)
  - DIABETES MELLITUS [None]
